FAERS Safety Report 6682456-7 (Version None)
Quarter: 2010Q2

REPORT INFORMATION
  Report Type: 
  Country: None (occurrence: None)
  Receive Date: 20100415
  Receipt Date: 20100331
  Transmission Date: 20101027
  Serious: Yes (Other)
  Sender: FDA-Public Use
  Company Number: PHHY2009CA47217

PATIENT
  Sex: Male

DRUGS (1)
  1. ZOMETA [Suspect]
     Indication: PROSTATE CANCER
     Dosage: 3 MG EVERY 5 WEEKS
     Route: 042
     Dates: start: 20090721

REACTIONS (13)
  - BLOOD PRESSURE DECREASED [None]
  - BLOOD UREA INCREASED [None]
  - COGNITIVE DISORDER [None]
  - CREATINE URINE DECREASED [None]
  - CREATININE RENAL CLEARANCE DECREASED [None]
  - DEHYDRATION [None]
  - DIZZINESS [None]
  - DYSURIA [None]
  - FALL [None]
  - HEADACHE [None]
  - INCORRECT DOSE ADMINISTERED [None]
  - MALAISE [None]
  - PALLOR [None]
